FAERS Safety Report 5748433-5 (Version None)
Quarter: 2008Q2

REPORT INFORMATION
  Report Type: 
  Country: None (occurrence: None)
  Receive Date: 20080523
  Receipt Date: 20080521
  Transmission Date: 20081010
  Serious: Yes (Hospitalization)
  Sender: FDA-Public Use
  Company Number: US-GENENTECH-261447

PATIENT
  Sex: Male
  Weight: 81.633 kg

DRUGS (6)
  1. BEVACIZUMAB [Suspect]
     Indication: HEAD AND NECK CANCER
     Dosage: 15 MG/KG, DAYS 1+22
     Dates: start: 20080221
  2. ERLOTINIB [Suspect]
     Indication: HEAD AND NECK CANCER
     Dosage: 150 MG, QD
     Dates: start: 20080422
  3. TAXOL [Suspect]
     Indication: HEAD AND NECK CANCER
     Dosage: UNK, DAYS 1+22
     Dates: start: 20080221
  4. TAXOL [Suspect]
     Dosage: 50 MG/M2, 1/WEEK
     Dates: start: 20080422
  5. FLUOROURACIL [Concomitant]
     Indication: HEAD AND NECK CANCER
     Dosage: UNK, DAYS 1+22
     Dates: start: 20080221
  6. RADIATION [Concomitant]
     Indication: HEAD AND NECK CANCER
     Dosage: UNK, QD
     Dates: start: 20080422

REACTIONS (2)
  - LEUKOPENIA [None]
  - PYREXIA [None]
